FAERS Safety Report 8344070-7 (Version None)
Quarter: 2012Q2

REPORT INFORMATION
  Report Type: 
  Country: None (occurrence: None)
  Receive Date: 20120508
  Receipt Date: 20101223
  Transmission Date: 20120825
  Serious: Yes (Other)
  Sender: FDA-Public Use
  Company Number: US-TEVA-2010006605

PATIENT
  Age: 45 Year
  Sex: Male

DRUGS (3)
  1. TREANDA [Suspect]
     Indication: NON-HODGKIN'S LYMPHOMA STAGE IV
     Route: 042
  2. RITUXIMAB [Concomitant]
  3. PEGFILGRASTIM [Concomitant]

REACTIONS (2)
  - SINUS CONGESTION [None]
  - NEUTROPHIL COUNT DECREASED [None]
